FAERS Safety Report 19685256 (Version 1)
Quarter: 2021Q3

REPORT INFORMATION
  Report Type: Report from Study
  Country: SG (occurrence: SG)
  Receive Date: 20210811
  Receipt Date: 20210811
  Transmission Date: 20211014
  Serious: Yes (Death)
  Sender: FDA-Public Use
  Company Number: SG-PFIZER INC-202101011112

PATIENT

DRUGS (1)
  1. MEROPENEM. [Suspect]
     Active Substance: MEROPENEM
     Indication: ENTEROBACTER INFECTION
     Dosage: UNK

REACTIONS (1)
  - Drug ineffective [Fatal]
